FAERS Safety Report 5154617-X (Version None)
Quarter: 2006Q4

REPORT INFORMATION
  Report Type: 
  Country: None (occurrence: None)
  Receive Date: 20061113
  Receipt Date: 20061030
  Transmission Date: 20070319
  Serious: Yes (Life-Threatening, Hospitalization)
  Sender: FDA-Public Use
  Company Number: T200601260

PATIENT
  Age: 74 Year
  Sex: Female

DRUGS (6)
  1. FLUOXETINE [Suspect]
     Indication: DEPRESSION
  2. FLUOXETINE [Suspect]
     Indication: SOMATIC DELUSION
  3. ZYPREXA [Suspect]
     Indication: DEPRESSION
  4. ZYPREXA [Suspect]
     Indication: SOMATIC DELUSION
  5. CITALOPRAM HYDROBROMIDE [Suspect]
  6. TOLVON (MIANSERIN HYDROCHLORIDE) [Suspect]

REACTIONS (19)
  - COMA [None]
  - CONVULSION [None]
  - DILATATION VENTRICULAR [None]
  - EXTENSOR PLANTAR RESPONSE [None]
  - HEPATIC ENZYME INCREASED [None]
  - HYPERTENSION [None]
  - HYPOTENSION [None]
  - MIOSIS [None]
  - MULTIPLE DRUG OVERDOSE INTENTIONAL [None]
  - MYOCLONUS [None]
  - PNEUMONIA [None]
  - POISONING [None]
  - PULMONARY EMBOLISM [None]
  - PULMONARY HYPERTENSION [None]
  - SELF-MEDICATION [None]
  - SUICIDE ATTEMPT [None]
  - TROPONIN T INCREASED [None]
  - URINARY INCONTINENCE [None]
  - VENTRICULAR FAILURE [None]
